FAERS Safety Report 18870418 (Version 1)
Quarter: 2021Q1

REPORT INFORMATION
  Report Type: Spontaneous
  Country: US (occurrence: US)
  Receive Date: 20210209
  Receipt Date: 20210209
  Transmission Date: 20210420
  Serious: No
  Sender: FDA-Public Use
  Company Number: US-JNJFOC-20210214560

PATIENT
  Age: 46 Year
  Sex: Female

DRUGS (2)
  1. BALVERSA [Suspect]
     Active Substance: ERDAFITINIB
     Dosage: 3MG TAKING 2 PILLS ONCE DAILY
     Route: 048
  2. BALVERSA [Suspect]
     Active Substance: ERDAFITINIB
     Indication: PRODUCT USED FOR UNKNOWN INDICATION
     Dosage: 4MG TAKING 2 PILLS ONCE DAILY?EXPIRY DATE: 10/31/2022
     Route: 048
     Dates: start: 20201112

REACTIONS (4)
  - Dry mouth [Unknown]
  - Blood phosphorus increased [Unknown]
  - Nail bed disorder [Unknown]
  - Dry skin [Unknown]
